FAERS Safety Report 4720216-4 (Version None)
Quarter: 2005Q3

REPORT INFORMATION
  Report Type: 
  Country: None (occurrence: None)
  Receive Date: 20050721
  Receipt Date: 20050708
  Transmission Date: 20060218
  Serious: Yes (Hospitalization)
  Sender: FDA-Public Use
  Company Number: GRWYE821511JUL05

PATIENT
  Age: 52 Year
  Sex: Female

DRUGS (3)
  1. ENBREL [Suspect]
     Indication: RHEUMATOID ARTHRITIS
     Route: 058
     Dates: start: 20050414, end: 20050619
  2. HYDROCORTISONE [Concomitant]
     Dosage: UNKNOWN
     Dates: start: 20050101, end: 20050619
  3. METHOTREXATE [Concomitant]

REACTIONS (8)
  - ANAEMIA [None]
  - ATRIAL FIBRILLATION [None]
  - CONDITION AGGRAVATED [None]
  - LEUKOPENIA [None]
  - PYREXIA [None]
  - RHEUMATOID ARTHRITIS [None]
  - STAPHYLOCOCCAL SEPSIS [None]
  - THROMBOCYTOPENIA [None]
